FAERS Safety Report 5225301-9 (Version None)
Quarter: 2007Q1

REPORT INFORMATION
  Report Type: 
  Country: None (occurrence: None)
  Receive Date: 20070131
  Receipt Date: 20070119
  Transmission Date: 20070707
  Serious: Yes (Other)
  Sender: FDA-Public Use
  Company Number: 2007GB00121

PATIENT
  Sex: Male
  Weight: 70 kg

DRUGS (6)
  1. ROSUVASTATIN [Suspect]
     Route: 048
     Dates: start: 20040101, end: 20061101
  2. ENOXAPARIN SODIUM [Concomitant]
  3. EZETIMIBE [Concomitant]
     Route: 048
  4. MEBEVERINE [Concomitant]
     Route: 048
  5. METOCLOPRAMIDE [Concomitant]
     Route: 048
  6. OMEPRAZOLE [Concomitant]

REACTIONS (10)
  - ABDOMINAL PAIN [None]
  - ASTHENIA [None]
  - DEEP VEIN THROMBOSIS [None]
  - DIARRHOEA [None]
  - FALL [None]
  - HEADACHE [None]
  - LETHARGY [None]
  - MOBILITY DECREASED [None]
  - NAUSEA [None]
  - ORAL PAIN [None]
